FAERS Safety Report 8174546-7 (Version None)
Quarter: 2012Q1

REPORT INFORMATION
  Report Type: 
  Country: None (occurrence: None)
  Receive Date: 20120229
  Receipt Date: 20120224
  Transmission Date: 20120608
  Serious: Yes (Hospitalization, Other)
  Sender: FDA-Public Use
  Company Number: FR-PFIZER INC-2012048946

PATIENT
  Age: 81 Year
  Sex: Female

DRUGS (12)
  1. IRBESARTAN [Suspect]
  2. CEFIXIME [Concomitant]
  3. HYPERIUM [Concomitant]
  4. BISOPROLOL FUMARATE [Concomitant]
  5. MIFLASONA [Concomitant]
  6. LASIX [Suspect]
  7. AMIODARONE [Concomitant]
  8. PANTOPRAZOLE [Concomitant]
  9. PRAVASTATIN SODIUM [Concomitant]
  10. IMOVANE [Concomitant]
  11. ALDACTONE [Suspect]
  12. POTASSIUM CHLORIDE [Suspect]

REACTIONS (8)
  - BRADYCARDIA [None]
  - FALL [None]
  - HYPOTENSION [None]
  - CLUMSINESS [None]
  - HYPERKALAEMIA [None]
  - LEFT VENTRICULAR FAILURE [None]
  - GASTROENTERITIS [None]
  - RENAL FAILURE ACUTE [None]
